FAERS Safety Report 20172804 (Version 1)
Quarter: 2021Q4

REPORT INFORMATION
  Report Type: Spontaneous
  Country: ES (occurrence: ES)
  Receive Date: 20211211
  Receipt Date: 20211211
  Transmission Date: 20220303
  Serious: Yes (Other)
  Sender: FDA-Public Use
  Company Number: None

PATIENT
  Age: 61 Year
  Sex: Male

DRUGS (6)
  1. ETOPOSIDE [Suspect]
     Active Substance: ETOPOSIDE
     Indication: Chemotherapy
     Dosage: 150 MG, ETOPOSIDE TEVA 20 MG / ML CONCENTRATE FOR SOLUTION FOR INFUSION, 1 VIAL OF 5 ML
     Route: 042
     Dates: start: 20211112, end: 20211114
  2. CARBOPLATIN [Suspect]
     Active Substance: CARBOPLATIN
     Indication: Chemotherapy
     Dosage: 420 MG, CARBOPLATIN PHARMACY10 MG / ML CONCENTRATE FOR SOLUTION FOR INFUSION EFG, 1 VIAL OF 45 ML
     Route: 042
     Dates: start: 20211112, end: 20211112
  3. TECENTRIQ [Suspect]
     Active Substance: ATEZOLIZUMAB
     Indication: Chemotherapy
     Dosage: 1200 MG, TECENTRIQ 1200 MG CONCENTRATE FOR SOLUTION FOR INFUSION, 1 VIAL
     Route: 042
     Dates: start: 20211112, end: 20211112
  4. DUPHALAC [Concomitant]
     Active Substance: LACTULOSE
     Dosage: 10 GRAM, DUPHALAC 10 G ORAL SOLUTION IN SAKET, 50 STICKS
     Route: 048
     Dates: start: 20211103
  5. MORPHINE SULFATE [Concomitant]
     Active Substance: MORPHINE SULFATE
     Dosage: 10 MG, MST CONTINUS 10 MG PROLONGED-RELEASE TABLETS, 60 TABLETS
     Route: 048
     Dates: start: 20211029
  6. METAMIZOLE SODIUM [Concomitant]
     Active Substance: METAMIZOLE SODIUM
     Dosage: 2 GRAM, METAMIZOL NORMON 0.4 G / ML SOLUTION FOR INJECTABLE AND FOR INFUSION EFG 5 AMPOULES OF 5 ML
     Route: 048
     Dates: start: 20211029

REACTIONS (5)
  - Hyperuricaemia [Recovering/Resolving]
  - Hyperkalaemia [Recovering/Resolving]
  - Blood creatine phosphokinase increased [Recovering/Resolving]
  - Tumour lysis syndrome [Recovering/Resolving]
  - Acute kidney injury [Recovering/Resolving]

NARRATIVE: CASE EVENT DATE: 20211116
